FAERS Safety Report 9444565 (Version 1)
Quarter: 2013Q3

REPORT INFORMATION
  Report Type: Spontaneous
  Country: US (occurrence: US)
  Receive Date: 20130807
  Receipt Date: 20130807
  Transmission Date: 20140515
  Serious: No
  Sender: FDA-Public Use
  Company Number: US-PFIZER INC-2013228111

PATIENT
  Sex: Male

DRUGS (2)
  1. LYRICA [Suspect]
     Indication: PAIN
     Dosage: 75 MG
  2. LYRICA [Suspect]
     Indication: NEURALGIA

REACTIONS (5)
  - Off label use [Unknown]
  - Dyspnoea [Unknown]
  - Anxiety [Unknown]
  - Insomnia [Unknown]
  - Drug ineffective for unapproved indication [Unknown]
